FAERS Safety Report 13981063 (Version 1)
Quarter: 2017Q3

REPORT INFORMATION
  Report Type: Spontaneous
  Country: US (occurrence: US)
  Receive Date: 20170918
  Receipt Date: 20170918
  Transmission Date: 20171128
  Serious: No
  Sender: FDA-Public Use
  Company Number: US-TEVA-743212ACC

PATIENT
  Sex: Female

DRUGS (1)
  1. BUPROPION HCL ER (SR DEP) [Suspect]
     Active Substance: BUPROPION HYDROCHLORIDE

REACTIONS (2)
  - Rash [Unknown]
  - Eczema [Unknown]
